FAERS Safety Report 8970931 (Version 4)
Quarter: 2013Q1

REPORT INFORMATION
  Report Type: Spontaneous
  Country: KR (occurrence: KR)
  Receive Date: 20121218
  Receipt Date: 20130318
  Transmission Date: 20140127
  Serious: Yes (Other)
  Sender: FDA-Public Use
  Company Number: KR-PFIZER INC-2012312627

PATIENT
  Sex: Male

DRUGS (1)
  1. CAVERJECT [Suspect]
     Dosage: 20 UG, UNK

REACTIONS (5)
  - Product quality issue [Recovering/Resolving]
  - Foreign body [Recovering/Resolving]
  - Emotional distress [Recovering/Resolving]
  - Wound secretion [Recovering/Resolving]
  - Gastric disorder [Recovering/Resolving]
